FAERS Safety Report 9743319 (Version 3)
Quarter: 2015Q3

REPORT INFORMATION
  Report Type: Spontaneous
  Country: US (occurrence: US)
  Receive Date: 20131210
  Receipt Date: 20150805
  Transmission Date: 20151125
  Serious: No
  Sender: FDA-Public Use
  Company Number: US-GILEAD-2009-0025629

PATIENT
  Age: 65 Year
  Sex: Female
  Weight: 81.65 kg

DRUGS (16)
  1. ALPHAGAN P [Concomitant]
     Active Substance: BRIMONIDINE TARTRATE
  2. ASPIRIN. [Concomitant]
     Active Substance: ASPIRIN
  3. BACTRIM DS [Concomitant]
     Active Substance: SULFAMETHOXAZOLE\TRIMETHOPRIM
  4. CRESTOR [Concomitant]
     Active Substance: ROSUVASTATIN CALCIUM
  5. DIOVAN [Concomitant]
     Active Substance: VALSARTAN
  6. LUNESTA [Concomitant]
     Active Substance: ESZOPICLONE
  7. SYNTHROID [Concomitant]
     Active Substance: LEVOTHYROXINE SODIUM
  8. CELEXA [Concomitant]
     Active Substance: CITALOPRAM HYDROBROMIDE
  9. CORDRAN [Concomitant]
     Active Substance: FLURANDRENOLIDE
  10. CELEBREX [Concomitant]
     Active Substance: CELECOXIB
  11. TOPAMAX [Concomitant]
     Active Substance: TOPIRAMATE
  12. HYDROCHLORTHIAZIDE [Concomitant]
     Active Substance: HYDROCHLOROTHIAZIDE
  13. LETAIRIS [Suspect]
     Active Substance: AMBRISENTAN
     Indication: PULMONARY ARTERIAL HYPERTENSION
     Route: 048
     Dates: start: 20091102, end: 20091119
  14. ELIDEL [Concomitant]
     Active Substance: PIMECROLIMUS
  15. PROVENTIL [Concomitant]
     Active Substance: ALBUTEROL
  16. MELOXICAM. [Concomitant]
     Active Substance: MELOXICAM

REACTIONS (3)
  - Malaise [Unknown]
  - Lethargy [Unknown]
  - Fatigue [Unknown]
